FAERS Safety Report 20778452 (Version 2)
Quarter: 2023Q2

REPORT INFORMATION
  Report Type: Spontaneous
  Country: US (occurrence: US)
  Receive Date: 20220503
  Receipt Date: 20230414
  Transmission Date: 20230722
  Serious: No
  Sender: FDA-Public Use
  Company Number: US-PFIZER INC-202101444981

PATIENT
  Age: 79 Year
  Sex: Female

DRUGS (5)
  1. RETACRIT [Suspect]
     Active Substance: EPOETIN ALFA-EPBX
     Indication: Nephrogenic anaemia
     Dosage: 11000 IU, WEEKLY
  2. RETACRIT [Suspect]
     Active Substance: EPOETIN ALFA-EPBX
     Dosage: 14000 IU, WEEKLY
  3. RETACRIT [Suspect]
     Active Substance: EPOETIN ALFA-EPBX
     Dosage: 20,000 UNITS/ML INJECTION INJECT 0.9ML SQ WEEKLY QS 4 WEEKS
     Route: 058
  4. RETACRIT [Suspect]
     Active Substance: EPOETIN ALFA-EPBX
     Dosage: INJECT 2.5 MLS UNDER THE SKIN ONCE A WEEK INJECT 25,000 UNITS SQ
     Route: 058
  5. RETACRIT [Suspect]
     Active Substance: EPOETIN ALFA-EPBX
     Dosage: 2 ML, WEEKLY (RETACRIT 10,000 UNITS/ML INJECTION .^ ^ INJECT 2 MLS UNDER THE SKIN ONCE A WEEK)
     Route: 058

REACTIONS (2)
  - Haemoglobin decreased [Unknown]
  - Wrong dose [Unknown]
